FAERS Safety Report 5893085-7 (Version None)
Quarter: 2008Q3

REPORT INFORMATION
  Report Type: 
  Country: None (occurrence: None)
  Receive Date: 20080919
  Receipt Date: 20080903
  Transmission Date: 20090109
  Serious: Yes (Hospitalization, Other)
  Sender: FDA-Public Use
  Company Number: 2008S1014917

PATIENT
  Age: 14 Year
  Sex: Male

DRUGS (3)
  1. ISOTRETINOIN [Suspect]
     Indication: ACNE
     Dosage: .3 MG/KG; DAILY;  0.6 MG/KG; DAILY
  2. TRIMETHOPRIM [Concomitant]
  3. DAPSONE [Concomitant]

REACTIONS (4)
  - CONSTIPATION [None]
  - EXOSTOSIS [None]
  - GAIT DISTURBANCE [None]
  - SAPHO SYNDROME [None]
